FAERS Safety Report 20967434 (Version 1)
Quarter: 2022Q2

REPORT INFORMATION
  Report Type: Spontaneous
  Country: SI (occurrence: None)
  Receive Date: 20220616
  Receipt Date: 20220616
  Transmission Date: 20220721
  Serious: Yes (Hospitalization)
  Sender: FDA-Public Use
  Company Number: 2022A216750

PATIENT
  Age: 70 Year
  Sex: Male

DRUGS (17)
  1. DAPAGLIFLOZIN [Suspect]
     Active Substance: DAPAGLIFLOZIN
     Indication: Cardiac failure
     Dosage: 10.0MG UNKNOWN
     Route: 048
  2. INSPRA [Concomitant]
     Active Substance: EPLERENONE
     Indication: Cardiac failure
     Route: 048
  3. MEDROL [Concomitant]
     Active Substance: METHYLPREDNISOLONE
     Indication: Bronchial obstruction
     Dosage: 32MG P.O., THEN 16MG P.O., THEN 8MG P.O.
     Route: 048
  4. MEDROL [Concomitant]
     Active Substance: METHYLPREDNISOLONE
     Indication: Respiratory failure
     Dosage: 32MG P.O., THEN 16MG P.O., THEN 8MG P.O.
     Route: 048
  5. ROSUVASTATIN CALCIUM [Concomitant]
     Active Substance: ROSUVASTATIN CALCIUM
     Indication: Myocardial infarction
     Dosage: 1 TBL IN THE EVENING
     Route: 048
  6. ASPIRIN [Concomitant]
     Active Substance: ASPIRIN
     Indication: Acute myocardial infarction
     Route: 048
  7. BOREZ [Concomitant]
     Indication: Cardiac failure
     Route: 048
  8. BOREZ [Concomitant]
     Indication: Atrial fibrillation
     Route: 048
  9. PLAVIX [Concomitant]
     Active Substance: CLOPIDOGREL BISULFATE
     Indication: Acute myocardial infarction
     Route: 048
  10. FENOTEROL HYDROBROMIDE\IPRATROPIUM BROMIDE [Concomitant]
     Active Substance: FENOTEROL HYDROBROMIDE\IPRATROPIUM BROMIDE
     Indication: Respiratory failure
     Dosage: 2 ML + 2 ML OF SALINE
     Route: 055
  11. FENOTEROL HYDROBROMIDE\IPRATROPIUM BROMIDE [Concomitant]
     Active Substance: FENOTEROL HYDROBROMIDE\IPRATROPIUM BROMIDE
     Indication: Bronchial obstruction
     Dosage: 2 ML + 2 ML OF SALINE
     Route: 055
  12. FRAGMIN [Concomitant]
     Active Substance: DALTEPARIN SODIUM
     Indication: Atrial fibrillation
     Route: 058
  13. FRAGMIN [Concomitant]
     Active Substance: DALTEPARIN SODIUM
     Indication: Acute myocardial infarction
     Route: 058
  14. MEDROL [Concomitant]
     Active Substance: METHYLPREDNISOLONE
     Indication: Bronchial obstruction
     Dosage: 40.0MG UNKNOWN
     Route: 042
  15. MEDROL [Concomitant]
     Active Substance: METHYLPREDNISOLONE
     Indication: Respiratory failure
     Dosage: 40.0MG UNKNOWN
     Route: 042
  16. ENTRESTO [Concomitant]
     Active Substance: SACUBITRIL\VALSARTAN
     Indication: Cardiac failure
     Route: 048
  17. PANTOPRAZOLE [Concomitant]
     Active Substance: PANTOPRAZOLE
     Indication: Prophylaxis
     Dosage: 1 TBL IN THE EMORNING40.0MG UNKNOWN
     Route: 048

REACTIONS (1)
  - Hypernatraemia [Recovered/Resolved]
